FAERS Safety Report 7727263-9 (Version None)
Quarter: 2011Q3

REPORT INFORMATION
  Report Type: 
  Country: None (occurrence: None)
  Receive Date: 20110902
  Receipt Date: 20110830
  Transmission Date: 20111222
  Serious: Yes (Death)
  Sender: FDA-Public Use
  Company Number: US-ELI_LILLY_AND_COMPANY-US201109000492

PATIENT

DRUGS (8)
  1. CETUXIMAB [Concomitant]
     Dosage: 250 MG/M2, OVER 60 MINUTES WEEKLY FOR 6 WEEKS
     Route: 065
  2. DEXAMETHASONE [Concomitant]
     Dosage: UNK, UNKNOWN
     Route: 065
  3. PEMETREXED [Suspect]
     Indication: NON-SMALL CELL LUNG CANCER
     Dosage: 500 MG/M2, OVER 10 MINUTES EVERY 21 DAYS FOR FOUR CYCLES
     Route: 065
  4. CARBOPLATIN [Concomitant]
     Indication: NON-SMALL CELL LUNG CANCER
     Dosage: UNK, OVER 30 MINUTES
     Route: 065
  5. CETUXIMAB [Concomitant]
     Indication: NON-SMALL CELL LUNG CANCER
     Dosage: 400 MG/M2, OVER 120 MINUTES ON DAY 1 OF WEEK 1
     Route: 065
  6. DIPHENHYDRAMINE HCL [Concomitant]
     Dosage: 50 MG, 30 TO 60 MINUTES BEFORE FIRST DOSE OF CETUXIMAB
     Route: 042
  7. FOLIC ACID [Concomitant]
     Dosage: UNK, UNKNOWN
     Route: 065
  8. VITAMIN B-12 [Concomitant]
     Dosage: UNK, UNKNOWN
     Route: 065

REACTIONS (1)
  - PNEUMONITIS [None]
